FAERS Safety Report 8928917 (Version 1)
Quarter: 2012Q4

REPORT INFORMATION
  Report Type: Spontaneous
  Country: DK (occurrence: None)
  Receive Date: 20121120
  Receipt Date: 20121120
  Transmission Date: 20130627
  Serious: Yes (Other)
  Sender: FDA-Public Use
  Company Number: 2012MA013446

PATIENT
  Age: 70 Year
  Sex: Female

DRUGS (1)
  1. FEVERALL [Suspect]
     Indication: POSTOPERATIVE PAIN
     Route: 042
     Dates: start: 20121105, end: 20121106

REACTIONS (3)
  - Hyperhidrosis [None]
  - Nausea [None]
  - Malaise [None]
